FAERS Safety Report 11840599 (Version 1)
Quarter: 2015Q4

REPORT INFORMATION
  Report Type: Spontaneous
  Country: US (occurrence: None)
  Receive Date: 20151215
  Receipt Date: 20151215
  Transmission Date: 20160305
  Serious: No
  Sender: FDA-Public Use
  Company Number: None

PATIENT
  Age: 63 Year
  Sex: Female
  Weight: 78.02 kg

DRUGS (8)
  1. CALCIUM [Concomitant]
     Active Substance: CALCIUM
  2. MULTIVITAMINS [Concomitant]
     Active Substance: VITAMINS
  3. CYCLOBENZAPRINE CADISTA QHL/QHL [Suspect]
     Active Substance: CYCLOBENZAPRINE
     Indication: MYALGIA
     Dosage: (NIGHT) ONE DAILY?
     Route: 048
     Dates: start: 20150920, end: 20150922
  4. TYNEOL [Concomitant]
  5. VITAMIN B12 [Concomitant]
     Active Substance: CYANOCOBALAMIN
  6. CLARTIN [Concomitant]
  7. PROA [Concomitant]
  8. GABAPENTIN. [Concomitant]
     Active Substance: GABAPENTIN

REACTIONS (13)
  - Heart rate increased [None]
  - Nausea [None]
  - Loss of employment [None]
  - Dysarthria [None]
  - Pollakiuria [None]
  - Inappropriate schedule of drug administration [None]
  - Confusional state [None]
  - Nervousness [None]
  - Dizziness [None]
  - Impaired work ability [None]
  - Pruritus [None]
  - Dry mouth [None]
  - Vision blurred [None]

NARRATIVE: CASE EVENT DATE: 20150925
